FAERS Safety Report 8367662-8 (Version None)
Quarter: 2012Q2

REPORT INFORMATION
  Report Type: 
  Country: None (occurrence: None)
  Receive Date: 20120517
  Receipt Date: 20120118
  Transmission Date: 20120825
  Serious: Yes (Hospitalization, Other)
  Sender: FDA-Public Use
  Company Number: PHHO2011FR00592

PATIENT
  Sex: Male
  Weight: 67 kg

DRUGS (1)
  1. EVEROLIMUS [Suspect]
     Indication: HEPATIC NEOPLASM MALIGNANT
     Dosage: UNK
     Route: 048
     Dates: start: 20101130, end: 20110105

REACTIONS (5)
  - THROMBOCYTOPENIA [None]
  - CONCOMITANT DISEASE PROGRESSION [None]
  - EPISTAXIS [None]
  - ANAEMIA [None]
  - HEPATIC CIRRHOSIS [None]
